FAERS Safety Report 5944856-X (Version None)
Quarter: 2008Q4

REPORT INFORMATION
  Report Type: 
  Country: None (occurrence: None)
  Receive Date: 20081021
  Receipt Date: 20080327
  Transmission Date: 20090506
  Serious: Yes (Other)
  Sender: FDA-Public Use
  Company Number: US-WYE-H03385308

PATIENT
  Age: 64 Year
  Sex: Female

DRUGS (8)
  1. PREMARIN [Suspect]
     Indication: HOT FLUSH
  2. CLIMARA [Suspect]
  3. ESTRACE [Suspect]
     Indication: HOT FLUSH
  4. OGEN [Suspect]
     Indication: HOT FLUSH
  5. PROMETRIUM [Suspect]
     Indication: HOT FLUSH
  6. PROVERA [Suspect]
     Indication: HOT FLUSH
  7. ESTRADERM [Suspect]
     Indication: HOT FLUSH
  8. ESTRADIOL [Suspect]
     Indication: HOT FLUSH

REACTIONS (1)
  - BREAST CANCER [None]
